FAERS Safety Report 8125902-4 (Version None)
Quarter: 2012Q1

REPORT INFORMATION
  Report Type: 
  Country: None (occurrence: None)
  Receive Date: 20120209
  Receipt Date: 20120206
  Transmission Date: 20120608
  Serious: Yes (Death)
  Sender: FDA-Public Use
  Company Number: US-ELI_LILLY_AND_COMPANY-US201202001867

PATIENT
  Sex: Female

DRUGS (4)
  1. HUMULIN N [Suspect]
     Dosage: UNK, UNKNOWN
     Route: 065
  2. XANAX [Concomitant]
  3. HUMULIN R [Suspect]
     Dosage: UNK, UNKNOWN
     Route: 065
  4. MORPHINE [Concomitant]

REACTIONS (1)
  - NEOPLASM MALIGNANT [None]
